FAERS Safety Report 7025020-2 (Version None)
Quarter: 2010Q4

REPORT INFORMATION
  Report Type: 
  Country: None (occurrence: None)
  Receive Date: 20101001
  Receipt Date: 20100923
  Transmission Date: 20110411
  Serious: Yes (Hospitalization)
  Sender: FDA-Public Use
  Company Number: FR-PFIZER INC-2010120698

PATIENT
  Age: 42 Year
  Sex: Male

DRUGS (8)
  1. TAHOR [Suspect]
     Dosage: UNK
     Route: 048
     Dates: end: 20100805
  2. LYRICA [Suspect]
     Dosage: UNK
     Route: 048
     Dates: end: 20100805
  3. AMITRIPTYLINE HCL [Suspect]
     Dosage: 50 MG, 3X/DAY
     Route: 048
     Dates: end: 20100805
  4. OMEPRAZOLE [Suspect]
     Dosage: 20 MG, 1X/DAY
     Route: 048
     Dates: end: 20100805
  5. SKENAN [Suspect]
     Dosage: UNK
     Route: 048
     Dates: end: 20100805
  6. COPAXONE [Concomitant]
  7. PERINDOPRIL ERBUMINE [Concomitant]
  8. CELECTOL [Concomitant]

REACTIONS (4)
  - CYTOLYTIC HEPATITIS [None]
  - HYPERKALAEMIA [None]
  - RENAL FAILURE ACUTE [None]
  - RHABDOMYOLYSIS [None]
